FAERS Safety Report 17428441 (Version 1)
Quarter: 2020Q1

REPORT INFORMATION
  Report Type: Report from Study
  Country: MX (occurrence: MX)
  Receive Date: 20200217
  Receipt Date: 20200217
  Transmission Date: 20200409
  Serious: Yes (Death, Other)
  Sender: FDA-Public Use
  Company Number: MX-ELI_LILLY_AND_COMPANY-MX202002006045

PATIENT
  Age: 60 Year
  Sex: Female
  Weight: 40 kg

DRUGS (1)
  1. TERIPARATIDE [Suspect]
     Active Substance: TERIPARATIDE
     Indication: OSTEOPOROSIS
     Dosage: 20 UG, DAILY
     Route: 058
     Dates: start: 20190826, end: 20191130

REACTIONS (7)
  - Fall [Unknown]
  - Renal failure [Unknown]
  - Weight decreased [Unknown]
  - Septic shock [Fatal]
  - Gastric disorder [Unknown]
  - Femur fracture [Unknown]
  - Pneumonia [Fatal]

NARRATIVE: CASE EVENT DATE: 201909
